FAERS Safety Report 7669247-5 (Version None)
Quarter: 2011Q3

REPORT INFORMATION
  Report Type: 
  Country: None (occurrence: None)
  Receive Date: 20110808
  Receipt Date: 20110802
  Transmission Date: 20111222
  Serious: Yes (Hospitalization)
  Sender: FDA-Public Use
  Company Number: PHHY2011AU68847

PATIENT
  Sex: Female

DRUGS (1)
  1. CLOZAPINE [Suspect]
     Dosage: 250 MG
     Dates: start: 20110711, end: 20110701

REACTIONS (3)
  - MYOCARDITIS [None]
  - TROPONIN INCREASED [None]
  - CARDIAC DISORDER [None]
